FAERS Safety Report 4936991-X (Version None)
Quarter: 2006Q1

REPORT INFORMATION
  Report Type: 
  Country: None (occurrence: None)
  Receive Date: 20060309
  Receipt Date: 20060109
  Transmission Date: 20060701
  Serious: Yes (Hospitalization)
  Sender: FDA-Public Use
  Company Number: US-ROCHE-431519

PATIENT
  Age: 47 Year
  Sex: Male
  Weight: 71.2 kg

DRUGS (5)
  1. PEGASYS [Suspect]
     Indication: HEPATITIS C
     Dosage: WEEKLY.
     Route: 058
     Dates: start: 20051215, end: 20060109
  2. COPEGUS [Suspect]
     Indication: HEPATITIS C
     Dosage: 400 MILLIGRAM IN THE MORNING, 600 MILLIGRAM IN THE EVENING.
     Route: 048
     Dates: start: 20051215, end: 20060109
  3. ZETIA [Suspect]
     Dosage: DAILY.
     Route: 048
     Dates: start: 20050315, end: 20060109
  4. COREG [Concomitant]
     Indication: HYPERTENSION
     Route: 048
  5. ALTACE [Concomitant]
     Indication: HYPERTENSION
     Dosage: DAILY.
     Route: 048

REACTIONS (4)
  - CONVULSION [None]
  - HYPERKALAEMIA [None]
  - HYPOCALCAEMIA [None]
  - INJURY [None]
